FAERS Safety Report 6195747-3 (Version None)
Quarter: 2009Q2

REPORT INFORMATION
  Report Type: 
  Country: None (occurrence: None)
  Receive Date: 20090520
  Receipt Date: 20090509
  Transmission Date: 20091009
  Serious: Yes (Other)
  Sender: FDA-Public Use
  Company Number: US-TEVA-194350USA

PATIENT
  Sex: Female
  Weight: 59.02 kg

DRUGS (1)
  1. PLAN B TABLET, LEVONORGESTREL, 0.75MG [Suspect]
     Indication: POST COITAL CONTRACEPTION
     Route: 048
     Dates: start: 20090401, end: 20090401

REACTIONS (1)
  - HAEMATEMESIS [None]
